FAERS Safety Report 9837133 (Version 1)
Quarter: 2014Q1

REPORT INFORMATION
  Report Type: Spontaneous
  Country: CH (occurrence: CH)
  Receive Date: 20140123
  Receipt Date: 20140123
  Transmission Date: 20141002
  Serious: Yes (Hospitalization)
  Sender: FDA-Public Use
  Company Number: CH-ASTRAZENECA-2014SE03625

PATIENT
  Age: 56 Year
  Sex: Female
  Weight: 61.3 kg

DRUGS (10)
  1. ESOMEP [Suspect]
     Route: 048
  2. XELODA [Suspect]
     Indication: COLON CANCER
     Route: 048
     Dates: start: 20130924
  3. CIPROFLOXACIN [Suspect]
     Route: 065
     Dates: start: 2013, end: 2013
  4. OXALIPLATIN [Suspect]
     Indication: COLON CANCER
     Route: 041
     Dates: start: 20130924
  5. CALCIUM ACETATE [Concomitant]
     Route: 048
     Dates: start: 2013
  6. AMLODIPIN [Concomitant]
     Route: 048
  7. METRONIDAZOLE [Concomitant]
     Dates: start: 2013
  8. IMIPENEM [Concomitant]
     Dates: start: 2013
  9. FLUCONAZOL [Concomitant]
     Dates: start: 2013
  10. NEUPOGEN [Concomitant]
     Dates: start: 2013

REACTIONS (5)
  - Tubulointerstitial nephritis [Recovering/Resolving]
  - Renal failure chronic [Recovering/Resolving]
  - Agranulocytosis [Unknown]
  - Mucosal inflammation [Unknown]
  - Panniculitis [Unknown]
